FAERS Safety Report 4761102-3 (Version None)
Quarter: 2005Q3

REPORT INFORMATION
  Report Type: 
  Country: None (occurrence: None)
  Receive Date: 20050901
  Receipt Date: 20050901
  Transmission Date: 20060218
  Serious: Yes (Hospitalization, Other)
  Sender: FDA-Public Use
  Company Number: None

PATIENT
  Sex: Female
  Weight: 15.2 kg

DRUGS (4)
  1. G-CSF [Suspect]
     Indication: EWING'S SARCOMA
     Dosage: SEE IMAGE
     Dates: start: 20050720, end: 20050822
  2. G-CSF [Suspect]
     Indication: PRIMITIVE NEUROECTODERMAL TUMOUR
     Dosage: SEE IMAGE
     Dates: start: 20050720, end: 20050822
  3. G-CSF [Suspect]
     Indication: EWING'S SARCOMA
     Dosage: SEE IMAGE
     Dates: start: 20050718
  4. G-CSF [Suspect]
     Indication: PRIMITIVE NEUROECTODERMAL TUMOUR
     Dosage: SEE IMAGE
     Dates: start: 20050718

REACTIONS (1)
  - RADIATION MUCOSITIS [None]
